FAERS Safety Report 26130932 (Version 1)
Quarter: 2025Q4

REPORT INFORMATION
  Report Type: Spontaneous
  Country: US (occurrence: None)
  Receive Date: 20251207
  Receipt Date: 20251207
  Transmission Date: 20260117
  Serious: No
  Sender: FDA-CTU
  Company Number: None

PATIENT
  Age: 26 Year
  Sex: Female

DRUGS (1)
  1. ZURZUVAE [Suspect]
     Active Substance: ZURANOLONE
     Indication: Perinatal depression
     Dosage: 50 MG DAILY ORAL
     Route: 048
     Dates: start: 20251127

REACTIONS (4)
  - Toxicity to various agents [None]
  - Insomnia [None]
  - Intentional dose omission [None]
  - Therapy change [None]

NARRATIVE: CASE EVENT DATE: 20251127
